FAERS Safety Report 12633151 (Version 2)
Quarter: 2016Q3

REPORT INFORMATION
  Report Type: Spontaneous
  Country: US (occurrence: US)
  Receive Date: 20160808
  Receipt Date: 20160808
  Transmission Date: 20161109
  Serious: No
  Sender: FDA-Public Use
  Company Number: US-BEH-2016058609

PATIENT
  Sex: Female
  Weight: 100 kg

DRUGS (36)
  1. ALEVE [Concomitant]
     Active Substance: NAPROXEN SODIUM
  2. CALCIUM [Concomitant]
     Active Substance: CALCIUM
  3. KEFLEX [Concomitant]
     Active Substance: CEPHALEXIN
  4. LISINOPRIL. [Concomitant]
     Active Substance: LISINOPRIL
  5. LITHIUM CARBONATE. [Concomitant]
     Active Substance: LITHIUM CARBONATE
  6. ZINC [Concomitant]
     Active Substance: ZINC\ZINC CHLORIDE
  7. HUMALOG [Concomitant]
     Active Substance: INSULIN LISPRO
  8. FORADIL [Concomitant]
     Active Substance: FORMOTEROL FUMARATE
  9. MECLIZINE [Concomitant]
     Active Substance: MECLIZINE HYDROCHLORIDE
  10. EPIPEN [Concomitant]
     Active Substance: EPINEPHRINE
  11. KLONOPIN [Concomitant]
     Active Substance: CLONAZEPAM
  12. HYDROXYZINE [Concomitant]
     Active Substance: HYDROXYZINE\HYDROXYZINE HYDROCHLORIDE
  13. FLUTICASONE [Concomitant]
     Active Substance: FLUTICASONE\FLUTICASONE PROPIONATE
  14. HIZENTRA [Suspect]
     Active Substance: HUMAN IMMUNOGLOBULIN G
     Indication: IMMUNODEFICIENCY COMMON VARIABLE
     Route: 058
  15. LANTUS [Concomitant]
     Active Substance: INSULIN GLARGINE
  16. LORAZEPAM. [Concomitant]
     Active Substance: LORAZEPAM
  17. CLOZAPINE. [Concomitant]
     Active Substance: CLOZAPINE
  18. NYSTATIN. [Concomitant]
     Active Substance: NYSTATIN
  19. MIDODRINE [Concomitant]
     Active Substance: MIDODRINE
  20. ALBUTEROL SULF [Concomitant]
  21. LISINOPRIL. [Concomitant]
     Active Substance: LISINOPRIL
  22. NEURONTIN [Concomitant]
     Active Substance: GABAPENTIN
  23. LEVOTHYROXINE. [Concomitant]
     Active Substance: LEVOTHYROXINE
  24. FERROUS GLUCONATE [Concomitant]
     Active Substance: FERROUS GLUCONATE
  25. SIMVASTATIN. [Concomitant]
     Active Substance: SIMVASTATIN
  26. LANSOPRAZOLE. [Concomitant]
     Active Substance: LANSOPRAZOLE
  27. FLOVENT [Concomitant]
     Active Substance: FLUTICASONE PROPIONATE
  28. FIORINAL [Concomitant]
     Active Substance: ASPIRIN\BUTALBITAL\CAFFEINE
  29. DIPHENHYDRAMINE. [Concomitant]
     Active Substance: DIPHENHYDRAMINE
  30. LORAZEPAM. [Concomitant]
     Active Substance: LORAZEPAM
  31. WITCH HAZEL. [Concomitant]
     Active Substance: WITCH HAZEL
  32. ASPIRIN. [Concomitant]
     Active Substance: ASPIRIN
  33. CRANBERRY. [Concomitant]
     Active Substance: CRANBERRY
  34. OMEGA 3 FISH OIL [Concomitant]
     Active Substance: FISH OIL\OMEGA-3 FATTY ACIDS
  35. L-LYSINE [Concomitant]
     Active Substance: LYSINE
  36. VITAMIN D [Concomitant]
     Active Substance: CHOLECALCIFEROL

REACTIONS (1)
  - Upper respiratory tract infection [Unknown]
